FAERS Safety Report 8511864-4 (Version None)
Quarter: 2012Q3

REPORT INFORMATION
  Report Type: 
  Country: None (occurrence: None)
  Receive Date: 20120716
  Receipt Date: 20120712
  Transmission Date: 20120928
  Serious: Yes (Hospitalization, Other)
  Sender: FDA-Public Use
  Company Number: PHFR2012GB003887

PATIENT
  Sex: Male

DRUGS (4)
  1. HALOPERIDOL [Concomitant]
  2. CLOZARIL [Suspect]
     Indication: SCHIZOPHRENIA
     Route: 048
     Dates: start: 20010701, end: 20120705
  3. PROCYCLIDINE HYDROCHLORIDE 2MG TAB [Concomitant]
  4. ACETAMINOPHEN [Concomitant]

REACTIONS (8)
  - OVERDOSE [None]
  - RESTLESSNESS [None]
  - ENCEPHALITIS [None]
  - VOMITING [None]
  - ANTIPSYCHOTIC DRUG LEVEL INCREASED [None]
  - CONFUSIONAL STATE [None]
  - CIRCULATORY COLLAPSE [None]
  - AGITATION [None]
